FAERS Safety Report 22285033 (Version 5)
Quarter: 2024Q1

REPORT INFORMATION
  Report Type: Spontaneous
  Country: US (occurrence: US)
  Receive Date: 20230504
  Receipt Date: 20240118
  Transmission Date: 20240409
  Serious: No
  Sender: FDA-Public Use
  Company Number: US-KARYOPHARM-2023KPT001156

PATIENT

DRUGS (11)
  1. XPOVIO [Suspect]
     Active Substance: SELINEXOR
     Indication: Plasma cell myeloma
     Dosage: 80 MG, WEEKLY
     Route: 048
     Dates: start: 2022, end: 202304
  2. XPOVIO [Suspect]
     Active Substance: SELINEXOR
     Dosage: 40 MG, EVERY OTHER WEEK
     Route: 048
     Dates: start: 2023, end: 2023
  3. XPOVIO [Suspect]
     Active Substance: SELINEXOR
     Dosage: 40 MG, WEEKLY
     Route: 048
     Dates: start: 2023, end: 2023
  4. XPOVIO [Suspect]
     Active Substance: SELINEXOR
     Dosage: 40 MG, 1X/2 WEEKS
     Route: 048
     Dates: start: 2023, end: 2023
  5. XPOVIO [Suspect]
     Active Substance: SELINEXOR
     Dosage: 40 MG, EVERY OTHER WEEK
     Route: 048
     Dates: start: 2023
  6. ACYCLOVIR [Concomitant]
     Active Substance: ACYCLOVIR
  7. DEXAMETHASONE [Concomitant]
     Active Substance: DEXAMETHASONE
  8. KYPROLIS [Concomitant]
     Active Substance: CARFILZOMIB
  9. PROMETHAZINE [Concomitant]
     Active Substance: PROMETHAZINE HYDROCHLORIDE
  10. XARELTO [Concomitant]
     Active Substance: RIVAROXABAN
  11. ZOFRAN [Concomitant]
     Active Substance: ONDANSETRON HYDROCHLORIDE

REACTIONS (7)
  - White blood cell count decreased [Not Recovered/Not Resolved]
  - Rash [Unknown]
  - Full blood count decreased [Unknown]
  - Fatigue [Unknown]
  - Pyrexia [Recovered/Resolved]
  - Dyspnoea [Unknown]
  - Asthenia [Unknown]

NARRATIVE: CASE EVENT DATE: 20230101
